FAERS Safety Report 4493977-X (Version None)
Quarter: 2004Q4

REPORT INFORMATION
  Report Type: 
  Country: None (occurrence: None)
  Receive Date: 20041105
  Receipt Date: 20041026
  Transmission Date: 20050328
  Serious: Yes (Disabling)
  Sender: FDA-Public Use
  Company Number: PHBS2004IT14497

PATIENT
  Age: 67 Year
  Sex: Female

DRUGS (2)
  1. AREDIA [Suspect]
     Dosage: 60 MG/MONTH
     Route: 042
     Dates: start: 19990416, end: 20041010
  2. FEMARA [Concomitant]
     Dosage: 2.5 MG/D
     Route: 048

REACTIONS (5)
  - ACTINOMYCOSIS [None]
  - INFECTION [None]
  - NEOPLASM [None]
  - OSTEOMYELITIS [None]
  - TOOTH EXTRACTION [None]
